FAERS Safety Report 17674588 (Version 3)
Quarter: 2023Q4

REPORT INFORMATION
  Report Type: Spontaneous
  Country: US (occurrence: None)
  Receive Date: 20200416
  Receipt Date: 20231005
  Transmission Date: 20240110
  Serious: Yes (Other)
  Sender: FDA-Public Use
  Company Number: 2020SE50586

PATIENT
  Age: 27680 Day
  Sex: Male
  Weight: 97.1 kg

DRUGS (63)
  1. NEXIUM [Suspect]
     Active Substance: ESOMEPRAZOLE MAGNESIUM
     Indication: Gastrooesophageal reflux disease
     Route: 048
     Dates: start: 199501, end: 201809
  2. NEXIUM [Suspect]
     Active Substance: ESOMEPRAZOLE MAGNESIUM
     Indication: Gastrooesophageal reflux disease
     Dosage: 40.0MG UNKNOWN
     Route: 048
     Dates: start: 2001, end: 2018
  3. NEXIUM [Suspect]
     Active Substance: ESOMEPRAZOLE MAGNESIUM
     Indication: Gastrooesophageal reflux disease
     Dosage: 40.0MG UNKNOWN
     Route: 048
     Dates: start: 20120309, end: 20160228
  4. NEXIUM 24HR [Suspect]
     Active Substance: ESOMEPRAZOLE MAGNESIUM
     Indication: Gastrooesophageal reflux disease
     Route: 048
     Dates: start: 199501, end: 201809
  5. NEXIUM 24HR [Suspect]
     Active Substance: ESOMEPRAZOLE MAGNESIUM
     Indication: Gastrooesophageal reflux disease
     Dosage: 20.0MG UNKNOWN
     Route: 048
     Dates: start: 2005, end: 2015
  6. NEXIUM 24HR [Suspect]
     Active Substance: ESOMEPRAZOLE MAGNESIUM
     Indication: Gastrooesophageal reflux disease
     Dosage: 20.0MG UNKNOWN
     Route: 048
     Dates: start: 20140328, end: 20151231
  7. PRILOSEC [Suspect]
     Active Substance: OMEPRAZOLE MAGNESIUM
     Indication: Gastrooesophageal reflux disease
     Route: 048
     Dates: start: 199501, end: 201809
  8. PRILOSEC [Suspect]
     Active Substance: OMEPRAZOLE MAGNESIUM
     Indication: Gastrooesophageal reflux disease
     Dosage: 20.0MG UNKNOWN
     Route: 048
     Dates: start: 200307
  9. PRILOSEC [Suspect]
     Active Substance: OMEPRAZOLE MAGNESIUM
     Indication: Gastrooesophageal reflux disease
     Dosage: UNKNOWN
     Route: 048
     Dates: start: 20170425, end: 20181107
  10. PRILOSEC OTC [Suspect]
     Active Substance: OMEPRAZOLE MAGNESIUM
     Indication: Gastrooesophageal reflux disease
     Route: 048
     Dates: start: 199501, end: 201809
  11. PRILOSEC OTC [Suspect]
     Active Substance: OMEPRAZOLE MAGNESIUM
     Indication: Gastrooesophageal reflux disease
     Dosage: 20.0MG UNKNOWN
     Route: 048
     Dates: start: 2005, end: 2018
  12. PRILOSEC OTC [Suspect]
     Active Substance: OMEPRAZOLE MAGNESIUM
     Indication: Gastrooesophageal reflux disease
     Dosage: 20.0MG UNKNOWN
     Route: 048
     Dates: start: 20050101, end: 20181231
  13. DEXILANT [Suspect]
     Active Substance: DEXLANSOPRAZOLE
  14. PREVACID [Suspect]
     Active Substance: LANSOPRAZOLE
     Indication: Gastrooesophageal reflux disease
     Dates: start: 199501, end: 201809
  15. PREVACID 24 HR [Suspect]
     Active Substance: LANSOPRAZOLE
     Indication: Gastrooesophageal reflux disease
     Dates: start: 199501, end: 201809
  16. PREVACID 24 HR [Suspect]
     Active Substance: LANSOPRAZOLE
     Indication: Gastrooesophageal reflux disease
     Dosage: 15.0MG UNKNOWN
     Dates: start: 2005, end: 2018
  17. PREVACID 24 HR [Suspect]
     Active Substance: LANSOPRAZOLE
     Indication: Gastrooesophageal reflux disease
     Dosage: 15.0MG UNKNOWN
     Dates: start: 20091112, end: 20181231
  18. PROTONIX [Suspect]
     Active Substance: PANTOPRAZOLE SODIUM
     Indication: Gastrooesophageal reflux disease
     Dates: start: 199501, end: 201809
  19. PROTONIX [Suspect]
     Active Substance: PANTOPRAZOLE SODIUM
     Indication: Gastrooesophageal reflux disease
     Dosage: 40.0MG UNKNOWN
     Dates: start: 2004, end: 2018
  20. PROTONIX [Suspect]
     Active Substance: PANTOPRAZOLE SODIUM
     Indication: Gastrooesophageal reflux disease
     Dosage: 40.0MG UNKNOWN
     Dates: start: 20181107, end: 20190712
  21. ZEGERID [Suspect]
     Active Substance: OMEPRAZOLE\SODIUM BICARBONATE
  22. ZEGERID OTC [Suspect]
     Active Substance: OMEPRAZOLE\SODIUM BICARBONATE
  23. NASTURTIUM OFFICINALE/SODIUM SULFATE/MYOSOTIS ARVENSIS/GERANIUM ROBERT [Concomitant]
  24. METOPROLOL SUCCINATE [Concomitant]
     Active Substance: METOPROLOL SUCCINATE
  25. XANAX [Concomitant]
     Active Substance: ALPRAZOLAM
  26. SEROQUEL [Concomitant]
     Active Substance: QUETIAPINE FUMARATE
  27. CIPRO [Concomitant]
     Active Substance: CIPROFLOXACIN HYDROCHLORIDE
     Indication: Infection
     Dates: start: 2011
  28. VANCOMYCIN [Concomitant]
     Active Substance: VANCOMYCIN
     Indication: Infection
     Dates: start: 2014
  29. SIMVASTATIN [Concomitant]
     Active Substance: SIMVASTATIN
     Indication: Vascular access complication
     Dates: start: 2017
  30. CRESTOR [Concomitant]
     Active Substance: ROSUVASTATIN CALCIUM
     Indication: Vascular access complication
     Dates: start: 2016
  31. LUPRON [Concomitant]
     Active Substance: LEUPROLIDE ACETATE
     Indication: Prostate cancer
     Dates: start: 2005
  32. METOPROLOL [Concomitant]
     Active Substance: METOPROLOL
     Indication: Atrial fibrillation
     Dates: start: 2017
  33. ATORVASTATIN [Concomitant]
     Active Substance: ATORVASTATIN
     Indication: Cerebrovascular accident
     Dates: start: 2019
  34. TYLENOL [Concomitant]
     Active Substance: ACETAMINOPHEN
     Indication: Pain
  35. DOXYCYCLINE [Concomitant]
     Active Substance: DOXYCYCLINE
     Indication: Infection
     Dates: start: 20170308
  36. AMOXICILLIN [Concomitant]
     Active Substance: AMOXICILLIN
     Indication: Infection
     Dates: start: 20170308
  37. AMOXICILLIN [Concomitant]
     Active Substance: AMOXICILLIN
     Indication: Infection
     Dates: start: 20150316
  38. AMOXICILLIN [Concomitant]
     Active Substance: AMOXICILLIN
     Indication: Infection
     Dates: start: 20170322
  39. AMOXICILLIN [Concomitant]
     Active Substance: AMOXICILLIN
     Indication: Infection
     Dates: start: 20170509
  40. CEPHALEXIN [Concomitant]
     Active Substance: CEPHALEXIN
     Indication: Infection
     Dates: start: 20170316
  41. ROSUVASTATIN [Concomitant]
     Active Substance: ROSUVASTATIN
     Indication: Blood cholesterol
     Dates: start: 20180818
  42. ROSUVASTATIN [Concomitant]
     Active Substance: ROSUVASTATIN
     Indication: Blood cholesterol
     Dates: start: 20181116, end: 20181216
  43. SULFAMETHOXAZOLE SODIUM/AMINOCAPROIC ACID/DIPOTASSIUM GLYCYRRHIZATE [Concomitant]
     Indication: Infection
     Dates: start: 20191210
  44. NASTURTIUM OFFICINALE/SODIUM SULFATE/MYOSOTIS ARVENSIS/GERANIUM ROBERT [Concomitant]
     Indication: Thyroid therapy
     Dates: start: 2004
  45. MINERALS\VITAMINS [Concomitant]
     Active Substance: MINERALS\VITAMINS
     Indication: Supplementation therapy
     Dates: start: 2020
  46. VITAMIN C [Concomitant]
     Active Substance: ASCORBIC ACID
     Indication: Supplementation therapy
     Dates: start: 202002
  47. VITAMIN D [Concomitant]
     Active Substance: VITAMIN D NOS
     Indication: Supplementation therapy
     Dates: start: 202002
  48. ZINC 50 [Concomitant]
     Indication: Supplementation therapy
     Dates: start: 202002
  49. QUERCETIN/GLYCYRRHIZA GLABRA/MATRICARIA CHAMOMILLA/ULMUS RUBRA/ALOE VE [Concomitant]
     Indication: Supplementation therapy
     Dates: start: 202002
  50. MELATONIN [Concomitant]
     Active Substance: MELATONIN
     Indication: Supplementation therapy
     Dates: start: 202002
  51. FAMOTIDINE [Concomitant]
     Active Substance: FAMOTIDINE
  52. ZANTAC [Concomitant]
     Active Substance: RANITIDINE HYDROCHLORIDE
     Dosage: ONE MONTH 2020
  53. TAGAMET [Concomitant]
     Active Substance: CIMETIDINE
     Dosage: ONE MONTH 2020
  54. PEPCID [Concomitant]
     Active Substance: FAMOTIDINE
     Dosage: ONE MONTH 2020
  55. BUSPIRONE [Concomitant]
     Active Substance: BUSPIRONE HYDROCHLORIDE
     Dosage: ONE MONTH 2020
  56. AUGMENTIN [Concomitant]
     Active Substance: AMOXICILLIN\CLAVULANATE POTASSIUM
     Dosage: ONE MONTH 2020
  57. LASIX [Concomitant]
     Active Substance: FUROSEMIDE
     Dosage: ONE MONTH 2020
  58. AMIODARONE [Concomitant]
     Active Substance: AMIODARONE
     Dosage: ONE MONTH 2020
  59. PROAIR HFA [Concomitant]
     Active Substance: ALBUTEROL SULFATE
     Dosage: ONE MONTH 2020
  60. PROMETHAZINE [Concomitant]
     Active Substance: PROMETHAZINE HYDROCHLORIDE
     Dosage: ONE MONTH 2020
  61. COLCHICINE [Concomitant]
     Active Substance: COLCHICINE
     Dosage: ONE MONTH 2020
  62. METHYLPREDNISOLONE [Concomitant]
     Active Substance: METHYLPREDNISOLONE
     Dosage: ONE MONTH 2020
  63. XARELTO [Concomitant]
     Active Substance: RIVAROXABAN
     Dosage: ONE MONTH 2020

REACTIONS (3)
  - Chronic kidney disease [Not Recovered/Not Resolved]
  - Renal failure [Unknown]
  - Renal injury [Unknown]

NARRATIVE: CASE EVENT DATE: 20180907
